FAERS Safety Report 23272538 (Version 1)
Quarter: 2023Q4

REPORT INFORMATION
  Report Type: Report from Study
  Country: US (occurrence: US)
  Receive Date: 20231207
  Receipt Date: 20231207
  Transmission Date: 20240109
  Serious: No
  Sender: FDA-Public Use
  Company Number: US-ALXN-A202209315

PATIENT
  Sex: Female

DRUGS (2)
  1. SOLIRIS [Suspect]
     Active Substance: ECULIZUMAB
     Indication: Myasthenia gravis
     Dosage: UNK
     Route: 065
  2. ULTOMIRIS [Suspect]
     Active Substance: RAVULIZUMAB-CWVZ
     Indication: Myasthenia gravis
     Dosage: UNK
     Route: 065

REACTIONS (21)
  - Suspected COVID-19 [Unknown]
  - Lacrimation increased [Unknown]
  - Weight decreased [Unknown]
  - Pain [Unknown]
  - Middle ear effusion [Recovering/Resolving]
  - Head discomfort [Unknown]
  - Sluggishness [Unknown]
  - Hypersomnia [Unknown]
  - Dehydration [Recovering/Resolving]
  - Incorrect product administration duration [Unknown]
  - Hyperhidrosis [Unknown]
  - Pyrexia [Unknown]
  - Nasopharyngitis [Unknown]
  - Rhinorrhoea [Unknown]
  - Cough [Unknown]
  - Myalgia [Recovering/Resolving]
  - Arthralgia [Unknown]
  - Dizziness [Unknown]
  - Fatigue [Unknown]
  - Influenza [Unknown]
  - Urinary tract infection [Not Recovered/Not Resolved]

NARRATIVE: CASE EVENT DATE: 20220801
